FAERS Safety Report 4648420-4 (Version None)
Quarter: 2005Q2

REPORT INFORMATION
  Report Type: 
  Country: None (occurrence: None)
  Receive Date: 20050427
  Receipt Date: 20040414
  Transmission Date: 20051028
  Serious: Yes (Life-Threatening)
  Sender: FDA-Public Use
  Company Number: HQWYE024714APR05

PATIENT
  Age: 61 Year
  Sex: Male

DRUGS (2)
  1. CORDARONE [Suspect]
     Dosage: 200 MG 1X PER 1 DAY, ORAL
     Route: 048
     Dates: start: 20010101, end: 20010420
  2. WARFARIN SODIUM [Concomitant]

REACTIONS (3)
  - BRONCHIOLITIS [None]
  - PULMONARY EMBOLISM [None]
  - RESPIRATORY FAILURE [None]
